FAERS Safety Report 5341924-0 (Version None)
Quarter: 2007Q2

REPORT INFORMATION
  Report Type: 
  Country: None (occurrence: None)
  Receive Date: 20070409
  Receipt Date: 20041208
  Transmission Date: 20071010
  Serious: Yes (Other)
  Sender: FDA-Public Use
  Company Number: GXBR2004US00567

PATIENT
  Sex: Male

DRUGS (1)
  1. AMIODARONE HCL [Suspect]
     Dates: start: 20031101, end: 20040601

REACTIONS (2)
  - BLINDNESS [None]
  - OPTIC NEURITIS [None]
